FAERS Safety Report 16638170 (Version 3)
Quarter: 2019Q3

REPORT INFORMATION
  Report Type: Report from Study
  Country: CA (occurrence: CA)
  Receive Date: 20190726
  Receipt Date: 20190917
  Transmission Date: 20191004
  Serious: Yes (Hospitalization, Disabling, Other)
  Sender: FDA-Public Use
  Company Number: CA-BRISTOL-MYERS SQUIBB COMPANY-BMS-2018-107847

PATIENT
  Age: 77 Year
  Sex: Female
  Weight: 40.82 kg

DRUGS (1)
  1. ABATACEPT [Suspect]
     Active Substance: ABATACEPT
     Indication: RHEUMATOID ARTHRITIS
     Dosage: 500 MG, Q4WK
     Route: 042
     Dates: start: 20150407

REACTIONS (12)
  - Weight decreased [Not Recovered/Not Resolved]
  - Balance disorder [Unknown]
  - Dysarthria [Unknown]
  - Nasopharyngitis [Recovering/Resolving]
  - Hemiparesis [Unknown]
  - Oral herpes [Unknown]
  - Cerebrovascular accident [Unknown]
  - Vein disorder [Unknown]
  - Infusion site extravasation [Unknown]
  - Catheter site haemorrhage [Unknown]
  - Crying [Unknown]
  - Muscle spasticity [Unknown]

NARRATIVE: CASE EVENT DATE: 20181113
